FAERS Safety Report 15105353 (Version 1)
Quarter: 2018Q3

REPORT INFORMATION
  Report Type: Report from Study
  Country: US (occurrence: US)
  Receive Date: 20180704
  Receipt Date: 20180704
  Transmission Date: 20181010
  Serious: Yes (Death)
  Sender: FDA-Public Use
  Company Number: PHEH2018US027403

PATIENT
  Sex: Male

DRUGS (3)
  1. EXJADE [Suspect]
     Active Substance: DEFERASIROX
     Indication: PRODUCT USED FOR UNKNOWN INDICATION
     Dosage: 500 MG, BID (TWICE A DAY)
     Route: 048
     Dates: start: 20180219
  2. EXJADE [Suspect]
     Active Substance: DEFERASIROX
     Dosage: 250 MG, QD (ONCE DAILY)
     Route: 048
     Dates: start: 20180318
  3. PROMACTA [Suspect]
     Active Substance: ELTROMBOPAG OLAMINE
     Indication: PRODUCT USED FOR UNKNOWN INDICATION
     Dosage: 25 MG, QD (ONCE DAILY)
     Route: 048
     Dates: start: 20180412

REACTIONS (1)
  - Death [Fatal]
